FAERS Safety Report 4455499-1 (Version None)
Quarter: 2004Q3

REPORT INFORMATION
  Report Type: 
  Country: None (occurrence: None)
  Receive Date: 20040917
  Receipt Date: 20040903
  Transmission Date: 20050211
  Serious: No
  Sender: FDA-Public Use
  Company Number: 04P-163-0272593-00

PATIENT
  Age: 38 Year
  Sex: Female

DRUGS (4)
  1. LOPINAVIR/RITONAVIR (LOPINAVIR/RITONAVIR) (LOPINAVIR/RITONAVIR) [Suspect]
     Indication: HIV INFECTION
     Dosage: SEE IMAGE
     Route: 048
     Dates: start: 20030723, end: 20040817
  2. LOPINAVIR/RITONAVIR (LOPINAVIR/RITONAVIR) (LOPINAVIR/RITONAVIR) [Suspect]
     Indication: HIV INFECTION
     Dosage: SEE IMAGE
     Route: 048
     Dates: start: 20040827
  3. BUCINDOLOL HYDROCHLORIDE [Concomitant]
  4. SERTRALINE HYDROCHLORIDE [Concomitant]

REACTIONS (7)
  - ABORTION SPONTANEOUS [None]
  - BLOOD HUMAN CHORIONIC GONADOTROPIN POSITIVE [None]
  - COMPLICATIONS OF MATERNAL EXPOSURE TO THERAPEUTIC DRUGS [None]
  - MATERNAL DRUGS AFFECTING FOETUS [None]
  - PREGNANCY [None]
  - THROMBOSIS [None]
  - VAGINAL HAEMORRHAGE [None]
